FAERS Safety Report 15951110 (Version 1)
Quarter: 2019Q1

REPORT INFORMATION
  Report Type: Spontaneous
  Country: GB (occurrence: GB)
  Receive Date: 20190211
  Receipt Date: 20190211
  Transmission Date: 20190417
  Serious: Yes (Other)
  Sender: FDA-Public Use
  Company Number: GB-JNJFOC-20190209237

PATIENT
  Sex: Female

DRUGS (4)
  1. PSYLLIUM HUSK. [Concomitant]
     Active Substance: PSYLLIUM HUSK
     Route: 065
  2. XARELTO [Suspect]
     Active Substance: RIVAROXABAN
     Indication: PRODUCT USED FOR UNKNOWN INDICATION
     Route: 048
  3. XARELTO [Suspect]
     Active Substance: RIVAROXABAN
     Indication: PRODUCT USED FOR UNKNOWN INDICATION
     Route: 048
  4. ZINC. [Concomitant]
     Active Substance: ZINC
     Route: 065

REACTIONS (29)
  - Heart rate increased [Unknown]
  - Headache [Unknown]
  - Mineral deficiency [Unknown]
  - Blood magnesium decreased [Unknown]
  - Adverse drug reaction [Not Recovered/Not Resolved]
  - Balance disorder [Unknown]
  - Tooth disorder [Unknown]
  - Blood pressure systolic increased [Unknown]
  - Ageusia [Unknown]
  - Tongue disorder [Unknown]
  - Varicose vein [Unknown]
  - Bone pain [Unknown]
  - Gastrointestinal carcinoma [Unknown]
  - Epistaxis [Unknown]
  - Alopecia [Unknown]
  - Diarrhoea [Unknown]
  - Swollen tongue [Not Recovered/Not Resolved]
  - Blood zinc decreased [Unknown]
  - Bronchiectasis [Unknown]
  - Colectomy [Unknown]
  - Dizziness [Unknown]
  - Fatigue [Unknown]
  - Dyspnoea [Unknown]
  - Arthritis [Unknown]
  - Pneumonia [Unknown]
  - Malaise [Unknown]
  - Depression [Unknown]
  - Inflammation [Unknown]
  - Nausea [Unknown]
